FAERS Safety Report 5716765-2 (Version None)
Quarter: 2008Q2

REPORT INFORMATION
  Report Type: 
  Country: None (occurrence: None)
  Receive Date: 20080422
  Receipt Date: 20080414
  Transmission Date: 20081010
  Serious: Yes (Hospitalization)
  Sender: FDA-Public Use
  Company Number: 6042257

PATIENT
  Age: 84 Year
  Sex: Female

DRUGS (13)
  1. BISOPROLOL FUMARATE [Suspect]
     Indication: HYPERTENSION
     Dosage: ORAL
     Route: 048
  2. CORDARONE [Suspect]
     Indication: ATRIAL FIBRILLATION
     Dosage: ORAL
     Route: 048
     Dates: end: 20080221
  3. PREVISCAN(20 MG, TABLET) (FLUINDIONE) [Suspect]
     Indication: DRUG USE FOR UNKNOWN INDICATION
     Dosage: ORAL
     Route: 048
  4. AMARYL [Suspect]
     Indication: TYPE 2 DIABETES MELLITUS
     Dosage: ORAL
     Route: 048
  5. TRIATEC(5 MG, TABLET) (RAMIPRIL) [Suspect]
     Indication: HYPERTENSION
     Dosage: ORAL
     Route: 048
  6. TRACLEER [Concomitant]
  7. EFFERALGAN (PARACETAMOL) [Concomitant]
  8. INEXIUM(20 MG, TABLET) (ESOMEPRAZOLE MAGNESIUM) [Concomitant]
  9. LASIX [Concomitant]
  10. IMOVANE(ZOPICLONE) [Concomitant]
  11. TERCIAN(25 MG, TABLET) (CYAMEMAZINE) [Concomitant]
  12. VASTAREL (TRIMETAZIDINE HYDROCHLORIDE) [Concomitant]
  13. SEROPLEX (ESCITALOPRAM OXALATE) [Concomitant]

REACTIONS (1)
  - INTERSTITIAL LUNG DISEASE [None]
